FAERS Safety Report 5622509-5 (Version None)
Quarter: 2008Q1

REPORT INFORMATION
  Report Type: 
  Country: None (occurrence: None)
  Receive Date: 20080211
  Receipt Date: 20080130
  Transmission Date: 20080703
  Serious: Yes (Other)
  Sender: FDA-Public Use
  Company Number: US-PFIZER INC-2008010346

PATIENT
  Sex: Female
  Weight: 56.818 kg

DRUGS (2)
  1. DILANTIN [Suspect]
     Indication: CONVULSION PROPHYLAXIS
  2. PHENYTOIN [Suspect]
     Indication: CONVULSION PROPHYLAXIS

REACTIONS (3)
  - ABDOMINAL PAIN [None]
  - BACK PAIN [None]
  - UNEVALUABLE EVENT [None]
